FAERS Safety Report 24326069 (Version 2)
Quarter: 2024Q3

REPORT INFORMATION
  Report Type: Report from Study
  Country: US (occurrence: US)
  Receive Date: 20240917
  Receipt Date: 20240918
  Transmission Date: 20241017
  Serious: No
  Sender: BRISTOL MYERS SQUIBB
  Company Number: US-BRISTOL-MYERS SQUIBB COMPANY-2024-147418

PATIENT
  Age: 73 Year
  Sex: Female
  Weight: 79.83 kg

DRUGS (1)
  1. ELIQUIS [Suspect]
     Active Substance: APIXABAN
     Indication: Post procedural stroke
     Route: 048
     Dates: start: 20240701

REACTIONS (4)
  - C-reactive protein abnormal [Unknown]
  - Off label use [Unknown]
  - Pain [Unknown]
  - Inflammation [Unknown]
